FAERS Safety Report 20501863 (Version 1)
Quarter: 2022Q1

REPORT INFORMATION
  Report Type: Spontaneous
  Country: NL (occurrence: NL)
  Receive Date: 20220222
  Receipt Date: 20220222
  Transmission Date: 20220423
  Serious: Yes (Hospitalization)
  Sender: FDA-Public Use
  Company Number: None

PATIENT
  Age: 65 Year
  Sex: Female
  Weight: 55.5 kg

DRUGS (15)
  1. CISPLATIN [Suspect]
     Active Substance: CISPLATIN
     Indication: Mantle cell lymphoma
     Dosage: 160MG EVERY 3 WEEKS, CISPLATINE INFUUS / BRAND NAME NOT SPECIFIED
     Dates: start: 20211208, end: 20211210
  2. PREDNISOLONE [Concomitant]
     Active Substance: PREDNISOLONE
     Dosage: INJVLST 12.5MG/ML / BRAND NAME NOT SPECIFIED, THERAPY START DATE AND END DATE : ASKU
  3. DEXAMETHASONE [Concomitant]
     Active Substance: DEXAMETHASONE
     Dosage: INJVLST 20MG/ML (BASE) / BRAND NAME NOT SPECIFIED, THERAPY START DATE AND END DATE : ASKU
  4. RITUXIMAB [Concomitant]
     Active Substance: RITUXIMAB
     Dosage: INFOPL CONC 10MG/ML / BRAND NAME NOT SPECIFIED, THERAPY START DATE AND END DATE : ASKU
  5. ONDANSETRON [Concomitant]
     Active Substance: ONDANSETRON
     Dosage: MELTING TABLET 8MG / BRAND NAME NOT SPECIFIED, THERAPY START DATE AND END DATE : ASKU
  6. METOCLOPRAMIDE [Concomitant]
     Active Substance: METOCLOPRAMIDE
     Dosage: 10MG / BRAND NAME NOT SPECIFIED, THERAPY START DATE AND END DATE : ASKU
  7. METOCLOPRAMIDE [Concomitant]
     Active Substance: METOCLOPRAMIDE
     Dosage: 10MG / BRAND NAME NOT SPECIFIED, THERAPY START DATE AND END DATE : ASKU
  8. CYTARABINE [Concomitant]
     Active Substance: CYTARABINE
     Dosage: INJ/INFOPL 100MG/ML / BRAND NAME NOT SPECIFIED, THERAPY START DATE AND END DATE : ASKU
  9. FUROSEMIDE [Concomitant]
     Active Substance: FUROSEMIDE
     Dosage: INFVLST 10MG/ML / BRAND NAME NOT SPECIFIED, THERAPY START DATE AND END DATE : ASKU
  10. CLEMASTINE [Concomitant]
     Active Substance: CLEMASTINE
     Dosage: INJVLST 1MG/ML / BRAND NAME NOT SPECIFIED, THERAPY START DATE AND END DATE : ASKU
  11. SULFAMETHOXAZOLE\TRIMETHOPRIM [Concomitant]
     Active Substance: SULFAMETHOXAZOLE\TRIMETHOPRIM
     Dosage: 480 TABLET 80/400MG / BRAND NAME NOT SPECIFIED, THERAPY START DATE AND END DATE : ASKU
  12. ACETAMINOPHEN [Concomitant]
     Active Substance: ACETAMINOPHEN
     Dosage: 500MG / BRAND NAME NOT SPECIFIED, THERAPY START DATE AND END DATE : ASKU
  13. PEGFILGRASTIM [Concomitant]
     Active Substance: PEGFILGRASTIM
     Dosage: INJVLST 10MG/ML / BRAND NAME NOT SPECIFIED, THERAPY START DATE AND END DATE : ASKU
  14. APREPITANT [Concomitant]
     Active Substance: APREPITANT
     Dosage: 125MG / BRAND NAME NOT SPECIFIED, THERAPY START DATE AND END DATE : ASKU
  15. CIPROFLOXACIN [Concomitant]
     Active Substance: CIPROFLOXACIN
     Dosage: CIPROFLOXACINE TABLET 250MG / BRAND NAME NOT SPECIFIED, THERAPY START DATE AND END DATE : ASKU

REACTIONS (1)
  - Renal salt-wasting syndrome [Recovered/Resolved]

NARRATIVE: CASE EVENT DATE: 20211214
